FAERS Safety Report 6935190-X (Version None)
Quarter: 2010Q3

REPORT INFORMATION
  Report Type: 
  Country: None (occurrence: None)
  Receive Date: 20100822
  Receipt Date: 20100817
  Transmission Date: 20110219
  Serious: Yes (Death, Other)
  Sender: FDA-Public Use
  Company Number: PHHY2010MX27673

PATIENT
  Age: 79 Year
  Sex: Female

DRUGS (13)
  1. DIOVAN HCT [Suspect]
     Indication: HYPERTENSION
     Dosage: 1 DF, QD
     Route: 048
  2. NIMOTOP [Concomitant]
  3. NEURONTIN [Concomitant]
  4. PRIMIDONE [Concomitant]
  5. ESCITALOPRAM [Concomitant]
  6. TENORMIN [Concomitant]
  7. NOVASIPINO [Concomitant]
  8. LANOXIN [Concomitant]
  9. COUMADIN [Concomitant]
  10. ALDACTONE [Concomitant]
  11. NORVASC [Concomitant]
  12. OROXADIN [Concomitant]
  13. ZYLOPRIM [Concomitant]

REACTIONS (5)
  - CARDIAC FAILURE [None]
  - CARDIO-RESPIRATORY ARREST [None]
  - CEREBROVASCULAR ACCIDENT [None]
  - CONDITION AGGRAVATED [None]
  - RENAL FAILURE [None]
